FAERS Safety Report 24379615 (Version 3)
Quarter: 2025Q2

REPORT INFORMATION
  Report Type: Spontaneous
  Country: CN (occurrence: CN)
  Receive Date: 20240930
  Receipt Date: 20250608
  Transmission Date: 20250716
  Serious: Yes (Hospitalization, Other)
  Sender: COHERUS
  Company Number: CN-SHANGHAI JUNSHI BIOSCIENCES CO., LTD.-CN2024011450

PATIENT

DRUGS (5)
  1. TORIPALIMAB [Suspect]
     Active Substance: TORIPALIMAB
     Indication: Lung neoplasm malignant
     Dosage: 240 MG, EVERY 21 DAYS
     Route: 041
     Dates: start: 20240904
  2. CARBOPLATIN [Suspect]
     Active Substance: CARBOPLATIN
     Indication: Lung neoplasm malignant
     Dosage: 490 MG, EVERY 21 DAYS
     Route: 041
     Dates: start: 20240904
  3. PACLITAXEL [Suspect]
     Active Substance: PACLITAXEL
     Indication: Lung neoplasm malignant
     Dosage: 400 MG, EVERY 21 DAYS
     Route: 041
     Dates: start: 20240904
  4. SODIUM CHLORIDE [Concomitant]
     Active Substance: SODIUM CHLORIDE
     Indication: Medication dilution
     Dosage: 100 ML, EVERY 21 DAYS
     Route: 041
     Dates: start: 20240904
  5. DEXTROSE [Concomitant]
     Active Substance: DEXTROSE MONOHYDRATE
     Indication: Medication dilution
     Dosage: 500 ML, EVERY 21 DAYS
     Route: 041
     Dates: start: 20240904

REACTIONS (1)
  - Myelosuppression [Recovering/Resolving]

NARRATIVE: CASE EVENT DATE: 20240909
